FAERS Safety Report 7317422-1 (Version None)
Quarter: 2011Q1

REPORT INFORMATION
  Report Type: 
  Country: None (occurrence: None)
  Receive Date: 20110226
  Receipt Date: 20101102
  Transmission Date: 20110831
  Serious: No
  Sender: FDA-Public Use
  Company Number: US-ALLERGAN-1014099US

PATIENT
  Age: 53 Year
  Sex: Female

DRUGS (2)
  1. BOTOX COSMETIC [Suspect]
     Indication: BACK DISORDER
     Dosage: 100 UNITS, SINGLE
     Dates: start: 20100601, end: 20100601
  2. DARVON [Concomitant]
     Indication: BACK PAIN
     Dosage: 130 MG, TID
     Route: 048

REACTIONS (5)
  - GAIT DISTURBANCE [None]
  - MUSCULOSKELETAL STIFFNESS [None]
  - ARTHRALGIA [None]
  - INSOMNIA [None]
  - FLUID RETENTION [None]
